FAERS Safety Report 18552042 (Version 1)
Quarter: 2020Q4

REPORT INFORMATION
  Report Type: Spontaneous
  Country: US (occurrence: US)
  Receive Date: 20201127
  Receipt Date: 20201127
  Transmission Date: 20210114
  Serious: No
  Sender: FDA-Public Use
  Company Number: US-ASTRAZENECA-2020SF44434

PATIENT
  Sex: Female
  Weight: 60.8 kg

DRUGS (3)
  1. BRILINTA [Suspect]
     Active Substance: TICAGRELOR
     Indication: DRUG HYPERSENSITIVITY
     Route: 048
     Dates: start: 2019
  2. BRILINTA [Suspect]
     Active Substance: TICAGRELOR
     Indication: DRUG HYPERSENSITIVITY
     Route: 048
     Dates: start: 2018, end: 2019
  3. ASPIRIN. [Suspect]
     Active Substance: ASPIRIN
     Route: 065

REACTIONS (3)
  - Chest pain [Recovering/Resolving]
  - Abdominal discomfort [Recovering/Resolving]
  - Oesophageal irritation [Recovering/Resolving]
